FAERS Safety Report 6164577-0 (Version None)
Quarter: 2009Q2

REPORT INFORMATION
  Report Type: 
  Country: None (occurrence: None)
  Receive Date: 20090423
  Receipt Date: 20090413
  Transmission Date: 20091009
  Serious: Yes (Hospitalization)
  Sender: FDA-Public Use
  Company Number: ES-ELI_LILLY_AND_COMPANY-ES200904003280

PATIENT
  Age: 72 Year
  Sex: Female

DRUGS (3)
  1. FORTEO [Suspect]
     Indication: OSTEOPOROSIS
     Dosage: 20 UG, UNKNOWN
     Route: 058
     Dates: start: 20081001
  2. SEGURIL [Concomitant]
     Dosage: UNK, UNKNOWN
     Route: 065
  3. INSULIN [Concomitant]
     Indication: DIABETES MELLITUS
     Dosage: 40 U, UNKNOWN
     Route: 065

REACTIONS (3)
  - CARDIAC DISORDER [None]
  - OEDEMA PERIPHERAL [None]
  - PULMONARY OEDEMA [None]
